FAERS Safety Report 7788137-0 (Version None)
Quarter: 2011Q3

REPORT INFORMATION
  Report Type: 
  Country: None (occurrence: None)
  Receive Date: 20110929
  Receipt Date: 20110929
  Transmission Date: 20111222
  Serious: Yes (Hospitalization)
  Sender: FDA-Public Use
  Company Number: None

PATIENT
  Age: 38 Year
  Sex: Male
  Weight: 102.4 kg

DRUGS (1)
  1. METRONIDAZOLE [Suspect]
     Indication: INFECTION
     Dosage: 500 MG TID PO
     Route: 048
     Dates: start: 20110509, end: 20110515

REACTIONS (5)
  - DRUG HYPERSENSITIVITY [None]
  - SWOLLEN TONGUE [None]
  - DYSPHAGIA [None]
  - RASH GENERALISED [None]
  - RASH PRURITIC [None]
